FAERS Safety Report 21239282 (Version 3)
Quarter: 2025Q2

REPORT INFORMATION
  Report Type: Spontaneous
  Country: GB (occurrence: GB)
  Receive Date: 20220822
  Receipt Date: 20250526
  Transmission Date: 20250717
  Serious: Yes (Hospitalization, Other)
  Sender: MYLAN
  Company Number: GB-ASPAR-ASP-21-00726

PATIENT
  Sex: Female

DRUGS (13)
  1. ATORVASTATIN [Suspect]
     Active Substance: ATORVASTATIN
     Indication: Product used for unknown indication
     Dosage: 10 MILLIGRAM, QD, 1 AT NIGHT
     Dates: start: 20220726, end: 20220727
  2. METFORMIN [Suspect]
     Active Substance: METFORMIN HYDROCHLORIDE
     Indication: Product used for unknown indication
     Dosage: 500 MILLIGRAM, QD (ONE DAILY)
     Dates: start: 20220726, end: 20220727
  3. SITAGLIPTIN [Suspect]
     Active Substance: SITAGLIPTIN
     Indication: Product used for unknown indication
     Dosage: 25 MILLIGRAM, BID (2 MORNING AND 1 AT NIGHT)
     Dates: start: 20220726, end: 20220727
  4. GLICLAZIDE [Suspect]
     Active Substance: GLICLAZIDE
     Indication: Product used for unknown indication
     Dosage: UNK, BID (GLICLAZIDE 60 MR - ONE MORNING AND NIGHT)
     Dates: start: 20220726, end: 20220727
  5. CARBIDOPA\LEVODOPA [Suspect]
     Active Substance: CARBIDOPA\LEVODOPA
     Indication: Product used for unknown indication
     Dosage: UNK, BID (12.5MG/50MG TWO IN THE MORNING AND 25MG/100MG ONE AT NIGHT)
     Dates: start: 20220726, end: 20220727
  6. CARBIDOPA\LEVODOPA [Suspect]
     Active Substance: CARBIDOPA\LEVODOPA
     Indication: Product used for unknown indication
     Dosage: UNK, HS (CO-CARELDOPA 25MG/100MG - ONE AT NIGHT)
     Dates: start: 20220726, end: 20220727
  7. CHOLECALCIFEROL [Suspect]
     Active Substance: CHOLECALCIFEROL
     Indication: Product used for unknown indication
     Dosage: 1 DOSAGE FORM, HS (ONE IN MORNING)
     Dates: start: 20220726, end: 20220727
  8. LEVOTHYROXINE [Suspect]
     Active Substance: LEVOTHYROXINE
     Indication: Product used for unknown indication
     Dosage: 25 MICROGRAM, QD, ONE DAILY
     Dates: start: 20220726, end: 20220727
  9. LEVOTHYROXINE [Suspect]
     Active Substance: LEVOTHYROXINE
     Dosage: 100 MICROGRAM, QD, (ONE DAILY)
     Dates: start: 20220726, end: 20220727
  10. SENNA [Suspect]
     Active Substance: SENNOSIDES
     Indication: Product used for unknown indication
     Dosage: 7.5 MILLIGRAM, BID (2 AT NIGHT)
     Dates: start: 20220726, end: 20220727
  11. AMITRIPTYLINE [Concomitant]
     Active Substance: AMITRIPTYLINE
     Indication: Product used for unknown indication
     Dosage: 10 MILLIGRAM, TID (3 AT NIGHT)
  12. APIXABAN [Concomitant]
     Active Substance: APIXABAN
     Indication: Product used for unknown indication
     Dosage: 2.5 MILLIGRAM, BID (ONE TWICE DAILY)
  13. ACETAMINOPHEN [Concomitant]
     Active Substance: ACETAMINOPHEN
     Indication: Product used for unknown indication
     Dosage: 1000 MILLIGRAM, TID (2 X 500MG THREE TIMES A DAY)

REACTIONS (5)
  - Circulatory collapse [Recovered/Resolved]
  - Loss of consciousness [Recovered/Resolved]
  - Wrong product administered [Unknown]
  - Product dispensing error [Unknown]
  - Medication error [Unknown]

NARRATIVE: CASE EVENT DATE: 20220726
